FAERS Safety Report 19807293 (Version 1)
Quarter: 2021Q3

REPORT INFORMATION
  Report Type: Spontaneous
  Country: US (occurrence: US)
  Receive Date: 20210907
  Receipt Date: 20210907
  Transmission Date: 20211014
  Serious: Yes (Hospitalization)
  Sender: FDA-Public Use
  Company Number: None

PATIENT
  Age: 64 Year
  Sex: Male

DRUGS (1)
  1. FLUOROURACIL. [Suspect]
     Active Substance: FLUOROURACIL
     Indication: NEOPLASM MALIGNANT
     Dosage: ?          OTHER FREQUENCY:EVERY46HOURS ;?
     Route: 042
     Dates: start: 20210803, end: 20210805

REACTIONS (2)
  - Wrong technique in device usage process [None]
  - Incorrect product administration duration [None]

NARRATIVE: CASE EVENT DATE: 20210803
